FAERS Safety Report 7209618-4 (Version None)
Quarter: 2011Q1

REPORT INFORMATION
  Report Type: 
  Country: None (occurrence: None)
  Receive Date: 20110104
  Receipt Date: 20101228
  Transmission Date: 20110831
  Serious: Yes (Life-Threatening, Other)
  Sender: FDA-Public Use
  Company Number: US-GENZYME-CLOF-1001361

PATIENT
  Age: 58 Year
  Sex: Female

DRUGS (3)
  1. CLOLAR [Suspect]
     Indication: ACUTE MYELOID LEUKAEMIA
     Dosage: 20 MG/M2, QDX5
     Route: 042
  2. MELPHALAN [Suspect]
     Indication: ACUTE MYELOID LEUKAEMIA
     Dosage: UNK
     Route: 065
  3. THIOTEPA [Suspect]
     Indication: ACUTE MYELOID LEUKAEMIA
     Dosage: UNK
     Route: 065

REACTIONS (5)
  - THROMBOSIS [None]
  - HYPERBILIRUBINAEMIA [None]
  - RENAL FAILURE [None]
  - MUCOSAL INFLAMMATION [None]
  - DYSPNOEA [None]
